FAERS Safety Report 7829796-3 (Version None)
Quarter: 2011Q4

REPORT INFORMATION
  Report Type: 
  Country: None (occurrence: None)
  Receive Date: 20111021
  Receipt Date: 20111018
  Transmission Date: 20120403
  Serious: Yes (Death)
  Sender: FDA-Public Use
  Company Number: US-JNJFOC-20111006397

PATIENT

DRUGS (2)
  1. RITUXIMAB [Suspect]
     Indication: HAIRY CELL LEUKAEMIA
     Dosage: FOR 8 WEEKS
     Route: 042
  2. CLADRIBINE [Suspect]
     Indication: HAIRY CELL LEUKAEMIA
     Dosage: GIVEN OVER 2 HOURS DAILY FOR 5 DAYS
     Route: 042

REACTIONS (1)
  - HAIRY CELL LEUKAEMIA [None]
